FAERS Safety Report 18948939 (Version 1)
Quarter: 2021Q1

REPORT INFORMATION
  Report Type: Spontaneous
  Country: US (occurrence: US)
  Receive Date: 20210227
  Receipt Date: 20210227
  Transmission Date: 20210420
  Serious: No
  Sender: FDA-Public Use
  Company Number: US-TEVA-2021-US-1883286

PATIENT
  Age: 66 Year
  Sex: Male
  Weight: 80.74 kg

DRUGS (3)
  1. PROAIR HFA [Suspect]
     Active Substance: ALBUTEROL SULFATE
     Dosage: 1 PUFF TWICE A DAY AS NEEDED
     Route: 065
     Dates: start: 201803
  2. LOSARTAN. [Concomitant]
     Active Substance: LOSARTAN
  3. FLOVENT [Concomitant]
     Active Substance: FLUTICASONE PROPIONATE
     Dosage: INHALER

REACTIONS (3)
  - Off label use [Unknown]
  - Hypertension [Unknown]
  - Product use in unapproved indication [Unknown]
